FAERS Safety Report 23576729 (Version 1)
Quarter: 2024Q1

REPORT INFORMATION
  Report Type: Report from Study
  Country: DE (occurrence: DE)
  Receive Date: 20240228
  Receipt Date: 20240228
  Transmission Date: 20240410
  Serious: Yes (Hospitalization)
  Sender: FDA-Public Use
  Company Number: DE-ROCHE-3414126

PATIENT
  Sex: Female
  Weight: 70 kg

DRUGS (9)
  1. TRASTUZUMAB [Suspect]
     Active Substance: TRASTUZUMAB
     Indication: Breast cancer
     Dosage: 840 MG
     Route: 065
     Dates: start: 20230804, end: 20230804
  2. TRASTUZUMAB [Suspect]
     Active Substance: TRASTUZUMAB
     Dosage: 567 MG
     Dates: start: 20230804
  3. TRASTUZUMAB [Suspect]
     Active Substance: TRASTUZUMAB
     Dosage: DATE OF LAST APPLICATION PRIOR EVENT 04/AUG/2023LAST DOSE PRIOR EVENT 567 MG
     Route: 065
     Dates: start: 20230823, end: 20231121
  4. CARBOPLATIN [Suspect]
     Active Substance: CARBOPLATIN
     Indication: Breast cancer
     Dosage: 470 MG
     Route: 065
     Dates: start: 20230804, end: 20231121
  5. PACLITAXEL [Suspect]
     Active Substance: PACLITAXEL
     Indication: Breast cancer
     Dosage: 138 MG
     Route: 065
     Dates: start: 20230804, end: 20231205
  6. PERJETA [Suspect]
     Active Substance: PERTUZUMAB
     Indication: Breast cancer
     Dosage: 840 MG
     Dates: start: 20230804
  7. PERJETA [Suspect]
     Active Substance: PERTUZUMAB
     Dosage: 567 MG
     Route: 065
     Dates: start: 20230804, end: 20230804
  8. PERJETA [Suspect]
     Active Substance: PERTUZUMAB
     Dosage: DATE OF LAST APPLICATION PRIOR EVENT 04/AUG/2023LAST DOSE PRIOR EVENT 840 MG
     Route: 065
     Dates: start: 20230823, end: 20231121
  9. VAGISAN [DL- LACTIC ACID;SODIUM LACTATE] [Concomitant]
     Dates: start: 202309

REACTIONS (2)
  - Vertigo [Recovered/Resolved]
  - Diarrhoea [Not Recovered/Not Resolved]
